FAERS Safety Report 21010874 (Version 1)
Quarter: 2022Q3

REPORT INFORMATION
  Report Type: Spontaneous
  Country: AU (occurrence: AU)
  Receive Date: 20220627
  Receipt Date: 20220627
  Transmission Date: 20221027
  Serious: Yes (Other)
  Sender: FDA-Public Use
  Company Number: AU-NOVARTISPH-NVSC2022AU146042

PATIENT
  Sex: Male

DRUGS (1)
  1. MAXIDEX [Suspect]
     Active Substance: DEXAMETHASONE
     Indication: Product used for unknown indication
     Dosage: UNK UNK, QID, (HE WAS SUPPOSED TO USE IT 4 TIMES A DAY FOR 4 WEEKS)
     Route: 047

REACTIONS (2)
  - Cataract [Unknown]
  - Corneal thinning [Unknown]
